FAERS Safety Report 23681716 (Version 2)
Quarter: 2024Q3

REPORT INFORMATION
  Report Type: Report from Study
  Country: CO (occurrence: CO)
  Receive Date: 20240328
  Receipt Date: 20240731
  Transmission Date: 20241017
  Serious: Yes (Hospitalization, Other)
  Sender: IPSEN
  Company Number: CO-IPSEN Group, Research and Development-2023-22298

PATIENT
  Age: 54 Year
  Sex: Female
  Weight: 83 kg

DRUGS (5)
  1. LANREOTIDE ACETATE [Suspect]
     Active Substance: LANREOTIDE ACETATE
     Indication: Neuroendocrine tumour
     Route: 058
     Dates: start: 20230523, end: 20240503
  2. LOSARTAN [Concomitant]
     Active Substance: LOSARTAN
     Indication: Blood pressure abnormal
     Dosage: 100MG/25MG, 1 TABLET PER DAY
     Route: 048
     Dates: start: 2014
  3. QUETIAPINE [Concomitant]
     Active Substance: QUETIAPINE
     Indication: Mental disorder
     Dosage: HALF TABLET AT NIGHT
     Route: 048
     Dates: start: 2022
  4. PAROXETINE [Concomitant]
     Active Substance: PAROXETINE
     Indication: Mental disorder
     Dosage: 1 TABLET PER DAY
     Route: 048
     Dates: start: 2022
  5. VITAMIN D [Concomitant]
     Active Substance: VITAMIN D NOS
     Dosage: 1 TABLET PER DAY
     Route: 048

REACTIONS (9)
  - Metastases to liver [Not Recovered/Not Resolved]
  - Metastases to gallbladder [Not Recovered/Not Resolved]
  - Abdominal pain [Not Recovered/Not Resolved]
  - Vomiting [Not Recovered/Not Resolved]
  - Malaise [Not Recovered/Not Resolved]
  - Abdominal distension [Not Recovered/Not Resolved]
  - Gastritis [Not Recovered/Not Resolved]
  - Product dose omission issue [Unknown]
  - Product supply issue [Unknown]

NARRATIVE: CASE EVENT DATE: 20230101
